FAERS Safety Report 7396900-3 (Version None)
Quarter: 2011Q2

REPORT INFORMATION
  Report Type: 
  Country: None (occurrence: None)
  Receive Date: 20110406
  Receipt Date: 20110103
  Transmission Date: 20111010
  Serious: No
  Sender: FDA-Public Use
  Company Number: US-BAYER-2011-027993

PATIENT
  Sex: Male
  Weight: 82 kg

DRUGS (2)
  1. ONE A DAY ENERGY [Suspect]
     Indication: VITAMIN SUPPLEMENTATION
     Dosage: UNK
     Dates: start: 20101201
  2. PEPTO BISMOL [Concomitant]

REACTIONS (2)
  - HEADACHE [None]
  - NAUSEA [None]
